FAERS Safety Report 10329219 (Version 1)
Quarter: 2014Q3

REPORT INFORMATION
  Report Type: Report from Study
  Country: US (occurrence: US)
  Receive Date: 20140721
  Receipt Date: 20140721
  Transmission Date: 20150326
  Serious: Yes (Hospitalization)
  Sender: FDA-Public Use
  Company Number: US-SA-2014SA095147

PATIENT
  Age: 44 Year
  Sex: Male

DRUGS (1)
  1. LANTUS [Suspect]
     Active Substance: INSULIN GLARGINE
     Indication: DIABETES MELLITUS
     Route: 065

REACTIONS (8)
  - Peripheral swelling [Unknown]
  - Arterial occlusive disease [Unknown]
  - Pain in extremity [Unknown]
  - Musculoskeletal pain [Unknown]
  - Impaired work ability [Unknown]
  - Back disorder [Unknown]
  - Hypertension [Unknown]
  - Decubitus ulcer [Unknown]
